FAERS Safety Report 4405218-X (Version None)
Quarter: 2004Q3

REPORT INFORMATION
  Report Type: 
  Country: None (occurrence: None)
  Receive Date: 20040723
  Receipt Date: 20040227
  Transmission Date: 20050211
  Serious: Yes (Hospitalization)
  Sender: FDA-Public Use
  Company Number: PHHO2004JP03384

PATIENT
  Age: 69 Year
  Sex: Male
  Weight: 59 kg

DRUGS (8)
  1. GLEEVEC [Suspect]
     Indication: CHRONIC MYELOID LEUKAEMIA
     Dosage: 400 MG, QD
     Route: 048
     Dates: start: 20030219, end: 20030304
  2. GLEEVEC [Suspect]
     Dosage: NO TREATMENT
     Dates: start: 20030305, end: 20030330
  3. GLEEVEC [Suspect]
     Dosage: 300 MG, QD
     Route: 048
     Dates: start: 20030331, end: 20030502
  4. GLEEVEC [Suspect]
     Dosage: NO TREATMENT
     Dates: start: 20030503, end: 20030505
  5. GLEEVEC [Suspect]
     Dosage: 300 MG, QD
     Route: 048
     Dates: start: 20030506, end: 20030520
  6. GLEEVEC [Suspect]
     Dosage: NO TREATMENT
     Dates: start: 20030521, end: 20030623
  7. GLEEVEC [Suspect]
     Dosage: 300 MG, QD
     Route: 048
     Dates: start: 20030624
  8. SELBEX [Concomitant]

REACTIONS (2)
  - BLADDER CANCER [None]
  - TUMOUR EXCISION [None]
